FAERS Safety Report 6535772-3 (Version None)
Quarter: 2010Q1

REPORT INFORMATION
  Report Type: 
  Country: None (occurrence: None)
  Receive Date: 20100113
  Receipt Date: 20100107
  Transmission Date: 20100710
  Serious: Yes (Other)
  Sender: FDA-Public Use
  Company Number: FR-ROCHE-678624

PATIENT
  Sex: Female

DRUGS (3)
  1. XELODA [Suspect]
     Indication: BREAST CANCER
     Route: 065
  2. ZOMETA [Concomitant]
     Indication: BREAST CANCER
  3. NAVELBINE [Concomitant]
     Indication: BREAST CANCER

REACTIONS (1)
  - RETINAL VEIN OCCLUSION [None]
